FAERS Safety Report 16427009 (Version 5)
Quarter: 2020Q1

REPORT INFORMATION
  Report Type: Report from Study
  Country: PL (occurrence: PL)
  Receive Date: 20190613
  Receipt Date: 20200116
  Transmission Date: 20200409
  Serious: Yes (Death)
  Sender: FDA-Public Use
  Company Number: PL-PFIZER INC-2019248990

PATIENT
  Age: 60 Year
  Sex: Male
  Weight: 91 kg

DRUGS (7)
  1. CETUXIMAB. [Suspect]
     Active Substance: CETUXIMAB
     Dosage: 1065 MG, EVERY 2 WEEKS
     Route: 042
     Dates: end: 20190506
  2. FOLINIC ACID [Suspect]
     Active Substance: LEUCOVORIN
     Indication: COLORECTAL CANCER METASTATIC
     Dosage: 200 UNK, UNK
     Route: 042
     Dates: start: 20190306, end: 20190506
  3. CETUXIMAB. [Suspect]
     Active Substance: CETUXIMAB
     Dosage: 500 MG/M2, CYCLIC (EVERY 2 WEEKS)
     Route: 042
     Dates: start: 20190306, end: 20190506
  4. IRINOTECAN HCL [Suspect]
     Active Substance: IRINOTECAN HYDROCHLORIDE
     Indication: COLORECTAL CANCER METASTATIC
     Dosage: 360 UNSPECIFIED UNITS, EVERY 2 WEEKS
     Route: 042
     Dates: start: 20190306, end: 20190506
  5. CETUXIMAB. [Suspect]
     Active Substance: CETUXIMAB
     Indication: COLORECTAL CANCER METASTATIC
     Dosage: 1100 MG, UNK
     Route: 042
     Dates: start: 20190306
  6. FLUOROURACIL. [Suspect]
     Active Substance: FLUOROURACIL
     Indication: COLORECTAL CANCER METASTATIC
     Dosage: 2000 UNPECIFIED UNITS
     Route: 042
     Dates: start: 20190306, end: 20190506
  7. CALCIUM FOLINATE [Suspect]
     Active Substance: LEUCOVORIN CALCIUM
     Indication: COLORECTAL CANCER METASTATIC
     Dosage: 200 UNSPECIFIED UNITS
     Route: 042
     Dates: start: 20190306, end: 20190506

REACTIONS (2)
  - Off label use [Unknown]
  - Death [Fatal]

NARRATIVE: CASE EVENT DATE: 20190516
